FAERS Safety Report 6388403-X (Version None)
Quarter: 2009Q4

REPORT INFORMATION
  Report Type: 
  Country: None (occurrence: None)
  Receive Date: 20091005
  Receipt Date: 20090930
  Transmission Date: 20100525
  Serious: Yes (Hospitalization)
  Sender: FDA-Public Use
  Company Number: US-SANOFI-SYNTHELABO-F03200900112

PATIENT
  Age: 70 Year
  Sex: Male
  Weight: 57.4 kg

DRUGS (3)
  1. XELODA [Suspect]
     Indication: GASTRIC CANCER
     Dosage: 850 MG/M2 BID X 14 DAYS
     Route: 048
     Dates: start: 20090415, end: 20090908
  2. CETUXIMAB [Suspect]
     Indication: GASTRIC CANCER
     Dosage: 250 MG/M2 ON DAY 1, 8 AND 15
     Route: 042
     Dates: start: 20090908, end: 20090908
  3. OXALIPLATIN [Suspect]
     Indication: GASTRIC CANCER
     Dosage: 130 MG/M2 ON DAY 1
     Route: 042
     Dates: start: 20090908, end: 20090908

REACTIONS (2)
  - ABDOMINAL PAIN [None]
  - CHOLECYSTITIS ACUTE [None]
